FAERS Safety Report 8925563 (Version 4)
Quarter: 2013Q4

REPORT INFORMATION
  Report Type: Report from Study
  Country: FR (occurrence: FR)
  Receive Date: 20121126
  Receipt Date: 20131227
  Transmission Date: 20140711
  Serious: Yes (Hospitalization)
  Sender: FDA-Public Use
  Company Number: FR-BAYER-2012-109656

PATIENT
  Age: 59 Year
  Sex: Female
  Weight: 66 kg

DRUGS (7)
  1. REGORAFENIB [Suspect]
     Indication: COLORECTAL CANCER METASTATIC
     Dosage: 160 MG, QD
     Route: 048
     Dates: start: 20120707, end: 20120729
  2. REGORAFENIB [Suspect]
     Indication: COLORECTAL CANCER METASTATIC
     Dosage: 160 MG, QD
     Route: 048
     Dates: start: 20120803, end: 20120824
  3. REGORAFENIB [Suspect]
     Indication: COLORECTAL CANCER METASTATIC
     Dosage: 160 MG, QD
     Route: 048
     Dates: start: 20120901, end: 20120921
  4. REGORAFENIB [Suspect]
     Indication: COLORECTAL CANCER METASTATIC
     Dosage: 120 MG, QD
     Route: 048
     Dates: start: 20121006, end: 20121019
  5. OXYCONTIN [Concomitant]
     Indication: ABDOMINAL PAIN
     Dosage: DAILY DOSE 20 MG
     Route: 048
     Dates: start: 201209
  6. OXYCODONE HYDROCHLORIDE [Concomitant]
     Indication: ABDOMINAL PAIN
     Dosage: 10 MG, PRN
     Route: 048
     Dates: start: 2012
  7. DOLIPRANE [Concomitant]
     Indication: ABDOMINAL PAIN
     Dosage: 1 G, PRN
     Route: 048
     Dates: start: 2012

REACTIONS (2)
  - Abdominal pain [Recovering/Resolving]
  - Pulmonary embolism [Recovered/Resolved]
